FAERS Safety Report 4328371-5 (Version None)
Quarter: 2004Q1

REPORT INFORMATION
  Report Type: 
  Country: None (occurrence: None)
  Receive Date: 20040324
  Receipt Date: 20031114
  Transmission Date: 20041129
  Serious: Yes (Other)
  Sender: FDA-Public Use
  Company Number: 10043713-C591578-1

PATIENT

DRUGS (1)
  1. 2B1654 - 20 MEQ POT CHL IN 5% DEX + .45% SOD CHL INJ, USP [Suspect]
     Dosage: CONTINUOUS INFUSION, PERIPHERAL INTRAVENOUS
     Route: 042
     Dates: start: 20031114

REACTIONS (2)
  - INJECTION SITE INFLAMMATION [None]
  - INJECTION SITE PAIN [None]
